FAERS Safety Report 24547058 (Version 1)
Quarter: 2024Q4

REPORT INFORMATION
  Report Type: Spontaneous
  Country: US (occurrence: US)
  Receive Date: 20241025
  Receipt Date: 20241025
  Transmission Date: 20250114
  Serious: No
  Sender: AILEX PHARMACEUTICALS LLC
  Company Number: AP-2024-US-6053

PATIENT
  Age: 70 Year
  Sex: Female

DRUGS (1)
  1. CROMOLYN SODIUM [Suspect]
     Active Substance: CROMOLYN SODIUM
     Indication: Mast cell activation syndrome
     Dosage: 2 AMPOULES FOUR TIMES DAILY
     Route: 048
     Dates: start: 202107

REACTIONS (3)
  - Product communication issue [Unknown]
  - Underdose [Unknown]
  - Therapeutic response decreased [Unknown]
